FAERS Safety Report 17846722 (Version 1)
Quarter: 2020Q2

REPORT INFORMATION
  Report Type: Spontaneous
  Country: CA (occurrence: CA)
  Receive Date: 20200601
  Receipt Date: 20200601
  Transmission Date: 20200714
  Serious: Yes (Other)
  Sender: FDA-Public Use
  Company Number: CA-PFIZER INC-2020211158

PATIENT
  Age: 21 Year
  Sex: Female

DRUGS (7)
  1. FENTANYL. [Concomitant]
     Active Substance: FENTANYL
     Indication: SEDATION
     Dosage: 50 MG
     Route: 042
  2. XELJANZ [Suspect]
     Active Substance: TOFACITINIB CITRATE
     Indication: COLITIS ULCERATIVE
     Dosage: 10 MG, 2X/DAY
     Route: 048
  3. POLYSACCHARIDE-IRON COMPLEX [Concomitant]
     Active Substance: FERRIC POLYSACCHARIDE COMPLEX
     Dosage: UNK, 1X/DAY
  4. HUMIRA [Suspect]
     Active Substance: ADALIMUMAB
     Indication: COLITIS ULCERATIVE
     Dosage: UNK
     Route: 058
  5. IRON [Concomitant]
     Active Substance: IRON
     Dosage: UNK
  6. INFLUENZA VACCINE [Suspect]
     Active Substance: INFLUENZA VIRUS VACCINE
     Dosage: UNK
     Route: 065
  7. REMICADE [Suspect]
     Active Substance: INFLIXIMAB
     Dosage: UNK
     Route: 065

REACTIONS (15)
  - Peritonsillar abscess [Unknown]
  - Drug ineffective [Unknown]
  - Colitis [Unknown]
  - Platelet count increased [Unknown]
  - Tonsillitis [Unknown]
  - Weight increased [Unknown]
  - Rectal haemorrhage [Unknown]
  - Anaemia [Unknown]
  - Cough [Unknown]
  - Dyspnoea [Unknown]
  - Flushing [Unknown]
  - Abdominal pain [Unknown]
  - Monocyte count increased [Unknown]
  - Drug hypersensitivity [Unknown]
  - Lymphocyte count decreased [Unknown]
